FAERS Safety Report 11123263 (Version 1)
Quarter: 2015Q2

REPORT INFORMATION
  Report Type: Spontaneous
  Country: US (occurrence: US)
  Receive Date: 20150519
  Receipt Date: 20150519
  Transmission Date: 20150821
  Serious: Yes (Hospitalization, Other)
  Sender: FDA-Public Use
  Company Number: US-GLAXOSMITHKLINE-US2015GSK068207

PATIENT
  Sex: Male

DRUGS (1)
  1. PROMACTA [Suspect]
     Active Substance: ELTROMBOPAG OLAMINE
     Indication: THROMBOCYTOPENIA
     Dosage: 25 MG, UNK
     Dates: start: 20150415

REACTIONS (4)
  - Epistaxis [Unknown]
  - Gastrointestinal haemorrhage [Unknown]
  - Hospitalisation [Unknown]
  - Transfusion [Unknown]
